FAERS Safety Report 15112490 (Version 3)
Quarter: 2018Q4

REPORT INFORMATION
  Report Type: Spontaneous
  Country: US (occurrence: US)
  Receive Date: 20180705
  Receipt Date: 20181009
  Transmission Date: 20190204
  Serious: No
  Sender: FDA-Public Use
  Company Number: PHEH2018US026046

PATIENT
  Sex: Male

DRUGS (1)
  1. COSENTYX [Suspect]
     Active Substance: SECUKINUMAB
     Indication: PRODUCT USE IN UNAPPROVED INDICATION
     Dosage: 150 MG/ML, QMO
     Route: 058

REACTIONS (2)
  - Wrong technique in product usage process [Unknown]
  - Product complaint [Unknown]
